FAERS Safety Report 17717351 (Version 5)
Quarter: 2023Q1

REPORT INFORMATION
  Report Type: Spontaneous
  Country: US (occurrence: US)
  Receive Date: 20200428
  Receipt Date: 20230130
  Transmission Date: 20230418
  Serious: No
  Sender: FDA-Public Use
  Company Number: US-PFIZER INC-2020163065

PATIENT
  Age: 75 Year
  Sex: Female

DRUGS (1)
  1. EUCRISA [Suspect]
     Active Substance: CRISABOROLE
     Dosage: UNK, 2X/DAY(TOPICALLY TO AFFECTED AREA(S) TWICE DAILY AS DIRECTED BY PHYSICIAN)
     Route: 061

REACTIONS (2)
  - Gastric disorder [Unknown]
  - Therapeutic response unexpected [Unknown]
